FAERS Safety Report 8400328-4 (Version None)
Quarter: 2012Q2

REPORT INFORMATION
  Report Type: 
  Country: None (occurrence: None)
  Receive Date: 20120531
  Receipt Date: 20120524
  Transmission Date: 20120825
  Serious: Yes (Other)
  Sender: FDA-Public Use
  Company Number: US-GILEAD-2012-0055153

PATIENT
  Sex: Female

DRUGS (7)
  1. AZTREONAM [Suspect]
     Indication: BRONCHIECTASIS
     Dosage: UNK
  2. TRAVOPROST [Concomitant]
     Indication: GLAUCOMA
     Dosage: UNK
     Dates: start: 20091030
  3. PLACEBO [Suspect]
     Indication: BRONCHIECTASIS
     Dosage: UNK
  4. AZTREONAM [Suspect]
     Indication: BRONCHIECTASIS
     Dosage: 75 MG, TID
     Route: 055
     Dates: start: 20120412, end: 20120509
  5. RALOXIFENE HCL [Concomitant]
     Indication: MENOPAUSE
     Dosage: UNK
     Dates: start: 20091007
  6. ALBUTEROL [Concomitant]
     Indication: BRONCHIECTASIS
     Dosage: UNK
     Dates: start: 20091204
  7. AZELASTINE HCL [Concomitant]
     Indication: SINUSITIS
     Dosage: UNK
     Dates: start: 20100209

REACTIONS (1)
  - DRUG HYPERSENSITIVITY [None]
